FAERS Safety Report 20222612 (Version 2)
Quarter: 2021Q4

REPORT INFORMATION
  Report Type: Report from Study
  Country: PA (occurrence: PA)
  Receive Date: 20211223
  Receipt Date: 20211230
  Transmission Date: 20220303
  Serious: Yes (Other)
  Sender: FDA-Public Use
  Company Number: PA-JNJFOC-20211239559

PATIENT
  Age: 42 Year
  Sex: Female
  Weight: 64 kg

DRUGS (1)
  1. SPRAVATO [Suspect]
     Active Substance: ESKETAMINE
     Indication: Depression suicidal
     Dates: start: 20211216

REACTIONS (4)
  - Dissociation [Recovered/Resolved]
  - Dizziness [Recovered/Resolved]
  - Depressed mood [Recovering/Resolving]
  - Muscle spasms [Recovered/Resolved]

NARRATIVE: CASE EVENT DATE: 20211216
